FAERS Safety Report 17555812 (Version 1)
Quarter: 2020Q1

REPORT INFORMATION
  Report Type: Spontaneous
  Country: US (occurrence: US)
  Receive Date: 20200318
  Receipt Date: 20200318
  Transmission Date: 20200409
  Serious: Yes (Hospitalization)
  Sender: FDA-Public Use
  Company Number: None

PATIENT
  Age: 62 Year
  Sex: Female

DRUGS (1)
  1. HUMIRA [Suspect]
     Active Substance: ADALIMUMAB
     Indication: PSORIASIS
     Dosage: ?          OTHER FREQUENCY:QOW;OTHER ROUTE:ABDOMEN OR THIGH ROTATE SITES?
     Dates: start: 20200225

REACTIONS (3)
  - Nephrolithiasis [None]
  - Loss of consciousness [None]
  - Therapy cessation [None]

NARRATIVE: CASE EVENT DATE: 20200317
